FAERS Safety Report 5915524-5 (Version None)
Quarter: 2008Q4

REPORT INFORMATION
  Report Type: 
  Country: None (occurrence: None)
  Receive Date: 20081010
  Receipt Date: 20080617
  Transmission Date: 20090506
  Serious: No
  Sender: FDA-Public Use
  Company Number: A0733422A

PATIENT
  Age: 59 Year
  Sex: Female

DRUGS (5)
  1. TYKERB [Suspect]
     Dosage: 1250MG PER DAY
     Route: 048
     Dates: start: 20080612
  2. LORTAB [Concomitant]
  3. XANAX [Concomitant]
  4. PHENERGAN HCL [Concomitant]
  5. ROCEPHIN [Concomitant]

REACTIONS (1)
  - NAUSEA [None]
